FAERS Safety Report 5420499-1 (Version None)
Quarter: 2007Q3

REPORT INFORMATION
  Report Type: 
  Country: None (occurrence: None)
  Receive Date: 20070718
  Receipt Date: 20060901
  Transmission Date: 20080115
  Serious: Yes (Hospitalization, Other)
  Sender: FDA-Public Use
  Company Number: 2006081735

PATIENT
  Age: 58 Year
  Sex: Male
  Weight: 88.905 kg

DRUGS (6)
  1. CELEBREX [Suspect]
     Indication: RHEUMATOID ARTHRITIS
     Dosage: (200 MG, 2-3 TIMES A DAY), ORAL
     Route: 048
     Dates: start: 19990326
  2. VERAPAMIL [Concomitant]
  3. PRILOSEC [Concomitant]
  4. TESTOSTERONE [Concomitant]
  5. ETANERCEPT (ETANERCEPT) [Concomitant]
  6. LIPITOR [Concomitant]

REACTIONS (1)
  - MYOCARDIAL INFARCTION [None]
